FAERS Safety Report 4546209-8 (Version None)
Quarter: 2005Q1

REPORT INFORMATION
  Report Type: 
  Country: None (occurrence: None)
  Receive Date: 20050103
  Receipt Date: 20041221
  Transmission Date: 20050727
  Serious: No
  Sender: FDA-Public Use
  Company Number: 2004UW26149

PATIENT
  Age: 0 Day
  Sex: Male
  Weight: 3527 kg

DRUGS (3)
  1. ATACAND [Suspect]
     Indication: HYPERTENSION
     Dosage: 8 MG DAILY TPL
     Route: 064
     Dates: end: 20040820
  2. HYDROCHLOROTHIAZIDE [Suspect]
     Indication: HYPERTENSION
     Dosage: 25 MG DAILY TPL
     Route: 064
     Dates: end: 20040820
  3. SYNTHROID [Suspect]
     Indication: HYPOTHYROIDISM
     Dosage: 88 UG TPL
     Route: 064

REACTIONS (6)
  - DRUG EXPOSURE DURING PREGNANCY [None]
  - FONTANELLE BULGING [None]
  - JAUNDICE NEONATAL [None]
  - OLIGOHYDRAMNIOS [None]
  - ULTRASOUND ANTENATAL SCREEN ABNORMAL [None]
  - ULTRASOUND KIDNEY ABNORMAL [None]
